FAERS Safety Report 19930138 (Version 11)
Quarter: 2022Q1

REPORT INFORMATION
  Report Type: Report from Study
  Country: KR (occurrence: KR)
  Receive Date: 20211008
  Receipt Date: 20220302
  Transmission Date: 20220423
  Serious: Yes (Hospitalization, Other)
  Sender: FDA-Public Use
  Company Number: KR-CELLTRION INC.-2021KR013482

PATIENT

DRUGS (100)
  1. HERZUMA [Suspect]
     Active Substance: TRASTUZUMAB-PKRB
     Indication: Biliary neoplasm
     Dosage: 384 MG
     Route: 042
     Dates: start: 20210901
  2. HERZUMA [Suspect]
     Active Substance: TRASTUZUMAB-PKRB
     Indication: Biliary neoplasm
     Dosage: 256 MG
     Route: 042
     Dates: start: 20210915
  3. HERZUMA [Suspect]
     Active Substance: TRASTUZUMAB-PKRB
     Dosage: 256 MG
     Route: 042
     Dates: start: 20211102
  4. HERZUMA [Suspect]
     Active Substance: TRASTUZUMAB-PKRB
     Dosage: 256 MG
     Route: 042
     Dates: start: 20211117
  5. HERZUMA [Suspect]
     Active Substance: TRASTUZUMAB-PKRB
     Dosage: 256 MG
     Route: 042
     Dates: start: 20211215
  6. HERZUMA [Suspect]
     Active Substance: TRASTUZUMAB-PKRB
     Dosage: 224.4 MG
     Route: 042
     Dates: start: 20220203
  7. OXALIPLATIN [Suspect]
     Active Substance: OXALIPLATIN
     Indication: Biliary neoplasm
     Dosage: 144.5 MG
     Route: 042
     Dates: start: 20210901
  8. OXALIPLATIN [Suspect]
     Active Substance: OXALIPLATIN
     Dosage: 144.5 MG
     Route: 042
     Dates: start: 20210915
  9. OXALIPLATIN [Suspect]
     Active Substance: OXALIPLATIN
     Dosage: 110.5 MG
     Route: 042
     Dates: start: 20211102
  10. OXALIPLATIN [Suspect]
     Active Substance: OXALIPLATIN
     Dosage: 110.5 MG
     Route: 042
     Dates: start: 20211117
  11. OXALIPLATIN [Suspect]
     Active Substance: OXALIPLATIN
     Dosage: 110.5 MG
     Route: 042
     Dates: start: 20211215
  12. OXALIPLATIN [Suspect]
     Active Substance: OXALIPLATIN
     Dosage: 79.5 MG
     Route: 042
     Dates: start: 20220203
  13. FLUOROURACIL [Suspect]
     Active Substance: FLUOROURACIL
     Indication: Biliary neoplasm
     Dosage: 680 MG
     Route: 042
     Dates: start: 20210901
  14. FLUOROURACIL [Suspect]
     Active Substance: FLUOROURACIL
     Dosage: 680 MG
     Route: 042
     Dates: start: 20210915
  15. FLUOROURACIL [Suspect]
     Active Substance: FLUOROURACIL
     Indication: Biliary neoplasm
     Dosage: 4080 MG
     Route: 042
     Dates: start: 20210901
  16. FLUOROURACIL [Suspect]
     Active Substance: FLUOROURACIL
     Dosage: 4080 MG
     Route: 042
     Dates: start: 20210915
  17. FLUOROURACIL [Suspect]
     Active Substance: FLUOROURACIL
     Dosage: 3230 MG
     Route: 042
     Dates: start: 20211102
  18. FLUOROURACIL [Suspect]
     Active Substance: FLUOROURACIL
     Dosage: 3230 MG
     Route: 042
     Dates: start: 20211117
  19. FLUOROURACIL [Suspect]
     Active Substance: FLUOROURACIL
     Dosage: 3230 MG
     Route: 042
     Dates: start: 20211215
  20. FLUOROURACIL [Suspect]
     Active Substance: FLUOROURACIL
     Dosage: 2385 MG
     Route: 042
     Dates: start: 20220203
  21. LEUCOVORIN CALCIUM [Suspect]
     Active Substance: LEUCOVORIN CALCIUM
     Indication: Biliary neoplasm
     Dosage: 340 MG
     Route: 042
     Dates: start: 20210901
  22. LEUCOVORIN CALCIUM [Suspect]
     Active Substance: LEUCOVORIN CALCIUM
     Dosage: 340 MG
     Route: 042
     Dates: start: 20210915
  23. LEUCOVORIN CALCIUM [Suspect]
     Active Substance: LEUCOVORIN CALCIUM
     Dosage: 340 MG
     Route: 042
     Dates: start: 20211102
  24. LEUCOVORIN CALCIUM [Suspect]
     Active Substance: LEUCOVORIN CALCIUM
     Dosage: 340 MG
     Route: 042
     Dates: start: 20211117
  25. LEUCOVORIN CALCIUM [Suspect]
     Active Substance: LEUCOVORIN CALCIUM
     Dosage: 340 MG
     Route: 042
     Dates: start: 20211215
  26. LEUCOVORIN CALCIUM [Suspect]
     Active Substance: LEUCOVORIN CALCIUM
     Dosage: 340 MG
     Route: 042
     Dates: start: 20220203
  27. Mypol [Concomitant]
     Indication: Tumour pain
     Dosage: 1 TAB TID
     Route: 048
     Dates: start: 20210830, end: 20211004
  28. Targin PR [Concomitant]
     Indication: Tumour pain
     Dosage: 1 TAB BID
     Route: 048
     Dates: start: 20210819
  29. DUKARB [Concomitant]
     Indication: Hypertension
     Dosage: 1 TAB QD
     Route: 048
     Dates: start: 2010
  30. Sigmat [Concomitant]
     Indication: Angina pectoris
     Dosage: 1 TAB QD
     Route: 048
     Dates: start: 2018
  31. NEXIUM [Concomitant]
     Active Substance: ESOMEPRAZOLE MAGNESIUM
     Indication: Gastrooesophageal reflux disease
     Dosage: 1 TAB QD
     Route: 048
     Dates: start: 2018
  32. VASTINAN MR [Concomitant]
     Indication: Angina pectoris
     Dosage: 1 TAB QD
     Route: 048
     Dates: start: 2018
  33. CLOPIDOGREL BISULFATE [Concomitant]
     Active Substance: CLOPIDOGREL BISULFATE
     Indication: Angina pectoris
     Dosage: 1 TAB QD
     Route: 048
     Dates: start: 2018
  34. HUMAN RED BLOOD CELL [Concomitant]
     Active Substance: HUMAN RED BLOOD CELL
     Indication: Anaemia
     Dosage: 1 PACK ONCE
     Route: 042
     Dates: start: 20210831, end: 20210831
  35. HUMAN RED BLOOD CELL [Concomitant]
     Active Substance: HUMAN RED BLOOD CELL
     Indication: Anaemia
     Dosage: 2 PINT, ONCE (400 ML)
     Route: 042
     Dates: start: 20210929, end: 20210929
  36. HUMAN RED BLOOD CELL [Concomitant]
     Active Substance: HUMAN RED BLOOD CELL
     Dosage: 2 PINT, ONCE (400 ML)
     Route: 042
     Dates: start: 20211101, end: 20211101
  37. HUMAN RED BLOOD CELL [Concomitant]
     Active Substance: HUMAN RED BLOOD CELL
     Dosage: 1 PACK ONCE (400 ML)
     Route: 042
     Dates: start: 20211116, end: 20211116
  38. HUMAN RED BLOOD CELL [Concomitant]
     Active Substance: HUMAN RED BLOOD CELL
     Dosage: 1 PINT ONCE (400 ML)
     Route: 042
     Dates: start: 20211201, end: 20211201
  39. DaewonDexamethasone [Concomitant]
     Indication: Prophylaxis
     Dosage: 5 MG ONCE
     Route: 042
     Dates: start: 20210831, end: 20210831
  40. DaewonDexamethasone [Concomitant]
     Dosage: 5 MG ONCE
     Route: 042
     Dates: start: 20210901, end: 20210901
  41. DaewonDexamethasone [Concomitant]
     Dosage: 5 MG ONCE
     Route: 042
     Dates: start: 20210915, end: 20210915
  42. DaewonDexamethasone [Concomitant]
     Dosage: 1 AMPULE ONCE
     Route: 042
     Dates: start: 20210929, end: 20210929
  43. DaewonDexamethasone [Concomitant]
     Dosage: 5 MG ONCE
     Route: 042
     Dates: start: 20211004, end: 20211004
  44. DaewonDexamethasone [Concomitant]
     Dosage: 5 MG ONCE
     Route: 042
     Dates: start: 20211020, end: 20211020
  45. DaewonDexamethasone [Concomitant]
     Dosage: 5 ML, ONCE
     Route: 042
     Dates: start: 20211102, end: 20211102
  46. DaewonDexamethasone [Concomitant]
     Dosage: 5 MG ONCE
     Route: 042
     Dates: start: 20211117, end: 20211117
  47. DaewonDexamethasone [Concomitant]
     Dosage: 5 MG ONCE
     Route: 042
     Dates: start: 20211201, end: 20211201
  48. DaewonDexamethasone [Concomitant]
     Dosage: 5 MG ONCE
     Route: 042
     Dates: start: 20211215, end: 20211215
  49. PENIRAMIN [Concomitant]
     Indication: Prophylaxis
     Dosage: 1AMP,ONCE
     Route: 042
     Dates: start: 20210929, end: 20210929
  50. PENIRAMIN [Concomitant]
     Dosage: 1AMP,ONCE
     Route: 042
     Dates: start: 20211101, end: 20211101
  51. PENIRAMIN [Concomitant]
     Dosage: 1AMP,ONCE
     Route: 042
     Dates: start: 20211116, end: 20211116
  52. ALOXI [Concomitant]
     Active Substance: PALONOSETRON HYDROCHLORIDE
     Indication: Prophylaxis
     Dosage: 1 VIAL ONCE
     Route: 042
     Dates: start: 20210901, end: 20210901
  53. METOCLOPRAMIDE HYDROCHLORIDE [Concomitant]
     Active Substance: METOCLOPRAMIDE HYDROCHLORIDE
     Indication: Nausea
     Dosage: 1 TAB PRN
     Route: 048
     Dates: start: 20210902
  54. HEPARIN SODIUM [Concomitant]
     Active Substance: HEPARIN SODIUM
     Indication: Prophylaxis
     Dosage: 1 VIAL ONCE
     Route: 042
     Dates: start: 20210914, end: 20210914
  55. Daihan Lidocaine HCl Hydrate [Concomitant]
     Indication: Prophylaxis
     Dosage: 1 VIAL ONCE
     Route: 042
     Dates: start: 20210914, end: 20210914
  56. CEFAZOLIN SODIUM [Concomitant]
     Active Substance: CEFAZOLIN SODIUM
     Indication: Prophylaxis
     Dosage: 1 VIAL ONCE
     Route: 042
     Dates: start: 20210914, end: 20210915
  57. KETORAC [Concomitant]
     Indication: Prophylaxis
     Dosage: 1 AMP ONCE
     Route: 042
     Dates: start: 20210914, end: 20210914
  58. TRAMADOL HYDROCHLORIDE [Concomitant]
     Active Substance: TRAMADOL HYDROCHLORIDE
     Indication: Prophylaxis
     Dosage: 1 AMP TID
     Route: 042
     Dates: start: 20210914, end: 20210914
  59. AKYNZEO [Concomitant]
     Active Substance: NETUPITANT\PALONOSETRON HYDROCHLORIDE
     Indication: Prophylaxis
     Dosage: 1 CAP ONCE
     Route: 048
     Dates: start: 20210915, end: 20210915
  60. AKYNZEO [Concomitant]
     Active Substance: NETUPITANT\PALONOSETRON HYDROCHLORIDE
     Dosage: 1 CAP ONCE
     Route: 048
     Dates: start: 20211004, end: 20211004
  61. AKYNZEO [Concomitant]
     Active Substance: NETUPITANT\PALONOSETRON HYDROCHLORIDE
     Dosage: 1 CAP ONCE
     Route: 048
     Dates: start: 20211020, end: 20211020
  62. AKYNZEO [Concomitant]
     Active Substance: NETUPITANT\PALONOSETRON HYDROCHLORIDE
     Dosage: 1 CAP ONCE
     Route: 048
     Dates: start: 20211102, end: 20211102
  63. AKYNZEO [Concomitant]
     Active Substance: NETUPITANT\PALONOSETRON HYDROCHLORIDE
     Dosage: 1 CAP ONCE
     Route: 048
     Dates: start: 20211117, end: 20211117
  64. AKYNZEO [Concomitant]
     Active Substance: NETUPITANT\PALONOSETRON HYDROCHLORIDE
     Dosage: 1 CAP ONCE
     Route: 048
     Dates: start: 20211201, end: 20211201
  65. AKYNZEO [Concomitant]
     Active Substance: NETUPITANT\PALONOSETRON HYDROCHLORIDE
     Dosage: 1 CAP ONCE
     Route: 048
     Dates: start: 20211215, end: 20211215
  66. AMINO ACIDS\DEXTROSE\ELECTROLYTES NOS\SOYBEAN OIL\VITAMINS [Concomitant]
     Active Substance: AMINO ACIDS\DEXTROSE\ELECTROLYTES NOS\SOYBEAN OIL\VITAMINS
     Indication: Decreased appetite
     Dosage: 1 PACK ONCE
     Route: 042
     Dates: start: 20210916, end: 20210916
  67. AMINO ACIDS\DEXTROSE\ELECTROLYTES NOS\SOYBEAN OIL\VITAMINS [Concomitant]
     Active Substance: AMINO ACIDS\DEXTROSE\ELECTROLYTES NOS\SOYBEAN OIL\VITAMINS
     Dosage: 645 ML, 1BAG,QD
     Route: 042
     Dates: start: 20210929, end: 20211005
  68. PIPERACILLIN SODIUM\TAZOBACTAM SODIUM [Concomitant]
     Active Substance: PIPERACILLIN SODIUM\TAZOBACTAM SODIUM
     Indication: Pyrexia
     Dosage: 1 VIAL TID
     Route: 042
     Dates: start: 20210929, end: 20211006
  69. PIPERACILLIN SODIUM\TAZOBACTAM SODIUM [Concomitant]
     Active Substance: PIPERACILLIN SODIUM\TAZOBACTAM SODIUM
     Dosage: 1 VIAL TID
     Route: 042
     Dates: start: 20211115, end: 20211118
  70. PROPACETAMOL HYDROCHLORIDE [Concomitant]
     Active Substance: PROPACETAMOL HYDROCHLORIDE
     Indication: Pyrexia
     Dosage: 1 VIAL PRN
     Route: 042
     Dates: start: 20210929, end: 20210929
  71. PROPACETAMOL HYDROCHLORIDE [Concomitant]
     Active Substance: PROPACETAMOL HYDROCHLORIDE
     Dosage: 1 VIAL PRN
     Route: 042
     Dates: start: 20211115, end: 20211115
  72. LASIX [Concomitant]
     Active Substance: FUROSEMIDE
     Indication: Prophylaxis
     Dosage: 1AMP,ONCE
     Route: 042
     Dates: start: 20210929, end: 20210929
  73. PACKED RBC [Concomitant]
     Indication: Anaemia
     Dosage: 2PINT,ONCE
     Route: 042
     Dates: start: 20210929, end: 20210929
  74. PACKED RBC [Concomitant]
     Indication: Anaemia
     Dosage: 2PINT,ONCE
     Route: 042
     Dates: start: 20211101, end: 20211101
  75. PACKED RBC [Concomitant]
     Dosage: 1 PACK, ONCE
     Route: 042
     Dates: start: 20211116, end: 20211116
  76. PACKED RBC [Concomitant]
     Dosage: 1 PINT, ONCE
     Route: 042
     Dates: start: 20211201, end: 20211201
  77. PACKED RBC [Concomitant]
     Dosage: 1 PACK, QD
     Route: 042
     Dates: start: 20211228, end: 20211228
  78. PACKED RBC [Concomitant]
     Dosage: 1 PACK, QD
     Route: 042
     Dates: start: 20211229, end: 20211229
  79. PACKED RBC [Concomitant]
     Dosage: 2 PINT, ONCE
     Route: 042
     Dates: start: 20211230, end: 20211230
  80. MEGACE F [Concomitant]
     Indication: Decreased appetite
     Dosage: 1 PACK
     Route: 048
     Dates: start: 20211005
  81. AMARYL [Concomitant]
     Active Substance: GLIMEPIRIDE
     Indication: Diabetes mellitus
     Dosage: 0.5 TAB
     Route: 048
     Dates: start: 20211006
  82. LINAGLIPTIN [Concomitant]
     Active Substance: LINAGLIPTIN
     Indication: Diabetes mellitus
     Dosage: 1 TAB
     Route: 048
     Dates: start: 20211006
  83. SUSPEN 8 HOURS ER [Concomitant]
     Indication: Prophylaxis
     Dosage: 1 TAB, PRN
     Route: 048
     Dates: start: 20211007, end: 20211012
  84. CAFSOL [Concomitant]
     Indication: Decreased appetite
     Dosage: 1 BOT, QD
     Route: 042
     Dates: start: 20211019, end: 20211019
  85. CAFSOL [Concomitant]
     Dosage: 1 BOT, ONCE
     Route: 042
     Dates: start: 20211115, end: 20211115
  86. CAFSOL [Concomitant]
     Dosage: 1 BOT, ONCE
     Route: 042
     Dates: start: 20211130, end: 20211130
  87. TAMIPOOL [ASCORBIC ACID;BIOTIN;CYANOCOBALAMIN;DEXPANTHENOL;ERGOCALCIFE [Concomitant]
     Indication: Decreased appetite
     Dosage: 1 VIAL QD
     Route: 042
     Dates: start: 20211019, end: 20211019
  88. TAMIPOOL [ASCORBIC ACID;BIOTIN;CYANOCOBALAMIN;DEXPANTHENOL;ERGOCALCIFE [Concomitant]
     Dosage: 1 VIAL ONCE
     Route: 042
     Dates: start: 20211115, end: 20211115
  89. TAMIPOOL [ASCORBIC ACID;BIOTIN;CYANOCOBALAMIN;DEXPANTHENOL;ERGOCALCIFE [Concomitant]
     Dosage: 1 VIAL ONCE
     Route: 042
     Dates: start: 20211130, end: 20211130
  90. DEXAMETHASONE [Concomitant]
     Active Substance: DEXAMETHASONE
     Indication: Prophylaxis
     Dosage: 1AMP,ONCE
     Route: 042
     Dates: start: 20210929, end: 20210929
  91. Macperan Inj [Concomitant]
     Indication: Nausea
     Dosage: 1 AMP
     Route: 042
     Dates: start: 20211005, end: 20211005
  92. GASTER [CROMOGLICATE SODIUM] [Concomitant]
     Indication: Nausea
     Dosage: 1 VIAL, BID
     Route: 042
     Dates: start: 20210930, end: 20211006
  93. CETIZAL [Concomitant]
     Indication: Pruritus
     Dosage: 1 TAB, QD
     Route: 048
     Dates: start: 20211020, end: 20211115
  94. BONALING A [Concomitant]
     Indication: Dizziness
     Dosage: 0.5 TAB, BID
     Route: 048
     Dates: start: 20211220, end: 20220111
  95. BROPIUM [Concomitant]
     Indication: Prophylaxis
     Dosage: 1 AMP, ONCE
     Route: 042
     Dates: start: 20211229, end: 20211229
  96. MEPERIDINE HYDROCHLORIDE [Concomitant]
     Active Substance: MEPERIDINE HYDROCHLORIDE
     Indication: Prophylaxis
     Dosage: 1 AMP, ONCE
     Route: 042
     Dates: start: 20211229, end: 20211229
  97. REBAMIPIDE [Concomitant]
     Active Substance: REBAMIPIDE
     Indication: Prophylaxis
     Dosage: 1 TAB, BID
     Route: 048
     Dates: start: 20211230
  98. GRASIN [Concomitant]
     Indication: Neutrophil count decreased
     Dosage: 1 SYRG, ONCE
     Route: 042
     Dates: start: 20220104, end: 20220104
  99. PROPRANOLOL HYDROCHLORIDE [Concomitant]
     Active Substance: PROPRANOLOL HYDROCHLORIDE
     Indication: Angina pectoris
     Dosage: 2 TAB, BID
     Route: 042
     Dates: start: 20220106
  100. MICATERE [Concomitant]
     Indication: Hypertension
     Dosage: 1 TAB, QD
     Route: 048
     Dates: start: 20220107, end: 20220111

REACTIONS (8)
  - Haematochezia [Recovered/Resolved]
  - Haematochezia [Recovered/Resolved]
  - Neoplasm recurrence [Unknown]
  - Diverticulum intestinal haemorrhagic [Unknown]
  - Pyrexia [Recovered/Resolved]
  - Sepsis [Recovered/Resolved]
  - Treatment delayed [Unknown]
  - Off label use [Unknown]

NARRATIVE: CASE EVENT DATE: 20210929
